FAERS Safety Report 12656526 (Version 1)
Quarter: 2016Q3

REPORT INFORMATION
  Report Type: Spontaneous
  Country: US (occurrence: US)
  Receive Date: 20160816
  Receipt Date: 20160816
  Transmission Date: 20161109
  Serious: No
  Sender: FDA-Public Use
  Company Number: US-PERRIGO-15US011623

PATIENT
  Age: 30 Year
  Sex: Female
  Weight: 113.38 kg

DRUGS (4)
  1. LORATADINE. [Suspect]
     Active Substance: LORATADINE
     Indication: NASAL INFLAMMATION
     Dosage: 10 MG, QD
     Route: 048
     Dates: start: 20151028, end: 20151030
  2. LORATADINE. [Suspect]
     Active Substance: LORATADINE
     Indication: NASAL CONGESTION
  3. LORATADINE. [Suspect]
     Active Substance: LORATADINE
     Indication: SWELLING FACE
  4. LORATADINE. [Suspect]
     Active Substance: LORATADINE
     Indication: FEELING ABNORMAL

REACTIONS (1)
  - Drug ineffective for unapproved indication [Unknown]

NARRATIVE: CASE EVENT DATE: 20151028
